FAERS Safety Report 8302574-7 (Version None)
Quarter: 2012Q2

REPORT INFORMATION
  Report Type: 
  Country: None (occurrence: None)
  Receive Date: 20120420
  Receipt Date: 20120416
  Transmission Date: 20120825
  Serious: Yes (Other)
  Sender: FDA-Public Use
  Company Number: DE-ROCHE-1053613

PATIENT
  Age: 65 Year
  Sex: Female
  Weight: 64 kg

DRUGS (14)
  1. ROFERON-A [Suspect]
     Indication: METASTATIC RENAL CELL CARCINOMA
     Dosage: 3 MIO IU
     Route: 058
     Dates: start: 20111219, end: 20120317
  2. AVASTIN [Suspect]
     Indication: METASTATIC RENAL CELL CARCINOMA
     Route: 042
     Dates: start: 20111219, end: 20120317
  3. PANTOPRAZOLE [Concomitant]
     Indication: GASTRITIS
  4. MOVIPREP [Concomitant]
  5. DIPYRONE TAB [Concomitant]
     Indication: PAIN
  6. OXYCODON HCL [Concomitant]
     Indication: PAIN
  7. AMLODIPINE [Concomitant]
     Indication: HYPERTENSION
  8. ACETAMINOPHEN [Concomitant]
     Indication: PAIN
  9. IBUPROFEN [Concomitant]
     Indication: PAIN
  10. FUROSEMIDE [Concomitant]
     Indication: CARDIAC FAILURE
     Dosage: 80 MG AT MORNING AND 40 MG AT AFTERNOON
  11. RAMIPRIL [Concomitant]
     Indication: HYPERTENSION
  12. METOPROLOL TARTRATE [Concomitant]
     Indication: HYPERTENSION
  13. PASPERTIN [Concomitant]
     Indication: DECREASED APPETITE
  14. MOLSIDOMIN [Concomitant]
     Indication: HYPERTENSION

REACTIONS (2)
  - EPILEPSY [None]
  - INFLUENZA LIKE ILLNESS [None]
